FAERS Safety Report 6031208-X (Version None)
Quarter: 2008Q4

REPORT INFORMATION
  Report Type: 
  Country: None (occurrence: None)
  Receive Date: 20081224
  Receipt Date: 20080221
  Transmission Date: 20090506
  Serious: Yes (Other)
  Sender: FDA-Public Use
  Company Number: 20080046  /

PATIENT
  Age: 46 Year
  Sex: Female

DRUGS (4)
  1. VENOFER [Suspect]
     Indication: IRON DEFICIENCY ANAEMIA
     Dosage: 500 MG / 500 CC NSS X 3-4 HRS INTRAVENOUS
     Route: 042
     Dates: start: 20080215
  2. OMEPRAZOLE [Concomitant]
  3. MULTI-VITAMIN [Concomitant]
  4. CYANOCOBALAMIN [Concomitant]

REACTIONS (1)
  - ANAPHYLACTOID REACTION [None]
